FAERS Safety Report 5103825-2 (Version None)
Quarter: 2006Q3

REPORT INFORMATION
  Report Type: 
  Country: None (occurrence: None)
  Receive Date: 20060913
  Receipt Date: 20060831
  Transmission Date: 20061208
  Serious: Yes (Other)
  Sender: FDA-Public Use
  Company Number: PHBS2006FI13220

PATIENT
  Sex: Female

DRUGS (2)
  1. ESTRADOT [Suspect]
     Dosage: 37.5 UG, UNK
     Route: 062
     Dates: end: 20050101
  2. ESTRADOT [Suspect]
     Dosage: 50 UG, UNK
     Route: 062
     Dates: start: 20050101

REACTIONS (8)
  - ABSCESS LIMB [None]
  - APPLICATION SITE REACTION [None]
  - FOLLICULITIS [None]
  - IMPETIGO [None]
  - RASH [None]
  - SKIN HAEMORRHAGE [None]
  - STRESS [None]
  - WHITE BLOOD CELL COUNT INCREASED [None]
